FAERS Safety Report 12526286 (Version 1)
Quarter: 2016Q3

REPORT INFORMATION
  Report Type: Spontaneous
  Country: US (occurrence: None)
  Receive Date: 20160701
  Receipt Date: 20160701
  Transmission Date: 20161109
  Serious: Yes (Other)
  Sender: FDA-Public Use
  Company Number: None

PATIENT
  Age: 69 Year
  Sex: Male
  Weight: 72.12 kg

DRUGS (6)
  1. PHENNOBARB [Concomitant]
  2. PICATO [Suspect]
     Active Substance: INGENOL MEBUTATE
     Indication: PRECANCEROUS SKIN LESION
     Dosage: 3 0.47 EA ONCE A DAY APPLIED TO A SURFACE, USUALLY THE SKIN
     Dates: start: 20160514, end: 20160516
  3. LOVASTATIN. [Concomitant]
     Active Substance: LOVASTATIN
  4. ATENOLOL. [Concomitant]
     Active Substance: ATENOLOL
  5. LORAZIPAM [Concomitant]
  6. DILANTIN [Concomitant]
     Active Substance: PHENYTOIN

REACTIONS (2)
  - Sinus pain [None]
  - Headache [None]

NARRATIVE: CASE EVENT DATE: 20160515
